FAERS Safety Report 4831281-8 (Version None)
Quarter: 2005Q4

REPORT INFORMATION
  Report Type: 
  Country: None (occurrence: None)
  Receive Date: 20051116
  Receipt Date: 20051103
  Transmission Date: 20060501
  Serious: Yes (Hospitalization, Other)
  Sender: FDA-Public Use
  Company Number: 2005BH002787

PATIENT
  Sex: Female

DRUGS (1)
  1. PROMETHAZINE [Suspect]
     Indication: NAUSEA

REACTIONS (5)
  - ARTERIAL SPASM [None]
  - CARDIOVASCULAR DISORDER [None]
  - FINGER AMPUTATION [None]
  - GANGRENE [None]
  - ISCHAEMIA [None]
